FAERS Safety Report 16153042 (Version 1)
Quarter: 2019Q2

REPORT INFORMATION
  Report Type: Spontaneous
  Country: US (occurrence: US)
  Receive Date: 20190403
  Receipt Date: 20190403
  Transmission Date: 20190711
  Serious: No
  Sender: FDA-Public Use
  Company Number: US-PRINSTON PHARMACEUTICAL INC.-2018PRN01316

PATIENT
  Age: 74 Year
  Sex: Female
  Weight: 60.32 kg

DRUGS (1)
  1. VALSARTAN. [Suspect]
     Active Substance: VALSARTAN
     Indication: BLOOD PRESSURE ABNORMAL
     Dosage: 1 TABLETS, 1X/DAY
     Route: 048
     Dates: start: 20180521, end: 2018

REACTIONS (2)
  - Platelet count decreased [Recovered/Resolved]
  - Recalled product administered [Recovered/Resolved]

NARRATIVE: CASE EVENT DATE: 20180719
